FAERS Safety Report 24682617 (Version 1)
Quarter: 2024Q4

REPORT INFORMATION
  Report Type: Spontaneous
  Country: US (occurrence: US)
  Receive Date: 20241130
  Receipt Date: 20241130
  Transmission Date: 20250115
  Serious: No
  Sender: ROCHE
  Company Number: US-ROCHE-10000137882

PATIENT
  Sex: Female

DRUGS (14)
  1. ACTEMRA [Suspect]
     Active Substance: TOCILIZUMAB
     Indication: Rheumatoid arthritis
     Route: 058
  2. ALBUTEROL SU AER 108 [Concomitant]
  3. ALENDRONATE [Concomitant]
     Active Substance: ALENDRONATE SODIUM
  4. ASPIRIN [Concomitant]
     Active Substance: ASPIRIN
  5. CALCIUM [Concomitant]
     Active Substance: CALCIUM
  6. FOLIC ACID [Concomitant]
     Active Substance: FOLIC ACID
  7. LOSARTAN [Concomitant]
     Active Substance: LOSARTAN
  8. PREDNISONE [Concomitant]
     Active Substance: PREDNISONE
  9. PREGABALIN [Concomitant]
     Active Substance: PREGABALIN
  10. RABEPRAZOLE [Concomitant]
     Active Substance: RABEPRAZOLE
  11. ROSUVASTATIN [Concomitant]
     Active Substance: ROSUVASTATIN
  12. SPIRONOLACTO [Concomitant]
  13. TRULICITY [Concomitant]
     Active Substance: DULAGLUTIDE
     Dosage: SOP 1.5MG/0.5ML
  14. TYLENOL [Concomitant]
     Active Substance: ACETAMINOPHEN

REACTIONS (1)
  - Muscle atrophy [Not Recovered/Not Resolved]
